FAERS Safety Report 6715937-8 (Version None)
Quarter: 2010Q2

REPORT INFORMATION
  Report Type: 
  Country: None (occurrence: None)
  Receive Date: 20100507
  Receipt Date: 20100504
  Transmission Date: 20101027
  Serious: Yes (Hospitalization)
  Sender: FDA-Public Use
  Company Number: US-ASTRAZENECA-2010SE20152

PATIENT
  Age: 53 Year
  Sex: Female
  Weight: 84.8 kg

DRUGS (4)
  1. SYMBICORT [Suspect]
     Indication: CHRONIC OBSTRUCTIVE PULMONARY DISEASE
     Dosage: 160
     Route: 055
  2. PULMICORT FLEXHALER [Suspect]
     Route: 055
  3. ALBUTEROL [Concomitant]
  4. VERAPAMIL [Concomitant]

REACTIONS (4)
  - CHRONIC OBSTRUCTIVE PULMONARY DISEASE [None]
  - DRUG INEFFECTIVE [None]
  - DRY MOUTH [None]
  - TACHYCARDIA [None]
